FAERS Safety Report 22007097 (Version 2)
Quarter: 2023Q2

REPORT INFORMATION
  Report Type: Report from Study
  Country: US (occurrence: US)
  Receive Date: 20230217
  Receipt Date: 20230504
  Transmission Date: 20230721
  Serious: Yes (Life-Threatening)
  Sender: FDA-Public Use
  Company Number: US-SEATTLE GENETICS-2023SGN01693

PATIENT
  Age: 68 Year
  Sex: Male
  Weight: 88.435 kg

DRUGS (2)
  1. BRENTUXIMAB VEDOTIN [Suspect]
     Active Substance: BRENTUXIMAB VEDOTIN
     Indication: Metastatic malignant melanoma
     Dosage: 1.8 MG/KG, Q3WEEKS
     Route: 042
     Dates: start: 20221130, end: 20221221
  2. PEMBROLIZUMAB [Suspect]
     Active Substance: PEMBROLIZUMAB
     Indication: Metastatic malignant melanoma
     Dosage: 200 MG, Q3WEEKS
     Route: 042
     Dates: start: 20221130, end: 20221221

REACTIONS (1)
  - Hypokalaemia [Recovered/Resolved]

NARRATIVE: CASE EVENT DATE: 20230110
